FAERS Safety Report 19398057 (Version 1)
Quarter: 2021Q2

REPORT INFORMATION
  Report Type: Spontaneous
  Country: US (occurrence: US)
  Receive Date: 20210609
  Receipt Date: 20210609
  Transmission Date: 20210717
  Serious: Yes (Hospitalization)
  Sender: FDA-Public Use
  Company Number: None

PATIENT
  Age: 45 Year
  Sex: Male
  Weight: 75.7 kg

DRUGS (10)
  1. ONDANESTRON [Concomitant]
  2. TOPIRAMATE. [Concomitant]
     Active Substance: TOPIRAMATE
  3. CITALOPRAM [Concomitant]
     Active Substance: CITALOPRAM HYDROBROMIDE
  4. MORPHINE [Concomitant]
     Active Substance: MORPHINE
  5. LANSOPRAZOLE. [Concomitant]
     Active Substance: LANSOPRAZOLE
  6. RUCAPARIB [Suspect]
     Active Substance: RUCAPARIB
     Indication: SMALL CELL LUNG CANCER
     Route: 048
     Dates: start: 20210525, end: 20210605
  7. HYOSCYAMINE. [Concomitant]
     Active Substance: HYOSCYAMINE
  8. PROCHLORPERAZINE. [Concomitant]
     Active Substance: PROCHLORPERAZINE
  9. BUSPIRONE [Concomitant]
     Active Substance: BUSPIRONE HYDROCHLORIDE
  10. NIVOLUMAB [Suspect]
     Active Substance: NIVOLUMAB
     Indication: SMALL CELL LUNG CANCER
     Dosage: ?          OTHER FREQUENCY:MONTHLY;?
     Route: 042
     Dates: start: 20210525, end: 20210525

REACTIONS (4)
  - Dysphagia [None]
  - Pulmonary hilum mass [None]
  - Mediastinal mass [None]
  - Refusal of treatment by patient [None]

NARRATIVE: CASE EVENT DATE: 20210606
